FAERS Safety Report 4730565-1 (Version None)
Quarter: 2005Q3

REPORT INFORMATION
  Report Type: 
  Country: None (occurrence: None)
  Receive Date: 20050725
  Receipt Date: 20050217
  Transmission Date: 20060218
  Serious: No
  Sender: FDA-Public Use
  Company Number: USA050291125

PATIENT
  Age: 10 Year
  Sex: Male

DRUGS (1)
  1. STRATTERA [Suspect]
     Indication: ATTENTION DEFICIT/HYPERACTIVITY DISORDER
     Dosage: 175 MG DAY
     Dates: start: 20031101, end: 20050201

REACTIONS (7)
  - ANXIETY [None]
  - BLOOD PRESSURE INCREASED [None]
  - ERYTHEMA [None]
  - HEART RATE INCREASED [None]
  - PRESCRIBED OVERDOSE [None]
  - PYREXIA [None]
  - STOMACH DISCOMFORT [None]
